FAERS Safety Report 7286416-7 (Version None)
Quarter: 2011Q1

REPORT INFORMATION
  Report Type: 
  Country: None (occurrence: None)
  Receive Date: 20110210
  Receipt Date: 20110208
  Transmission Date: 20110831
  Serious: Yes (Other)
  Sender: FDA-Public Use
  Company Number: US-AMGEN-USASP2011005279

PATIENT
  Sex: Male
  Weight: 100 kg

DRUGS (5)
  1. DICLOFENAC SODIUM [Concomitant]
  2. PROMACTA [Concomitant]
     Dosage: UNK
     Dates: start: 20100513
  3. NPLATE [Suspect]
     Indication: IDIOPATHIC THROMBOCYTOPENIC PURPURA
     Dosage: 500 A?G, QWK
     Route: 058
     Dates: start: 20100813
  4. IMMUNE GLOBULIN NOS [Concomitant]
     Dosage: UNK
     Route: 042
     Dates: start: 19980101
  5. CYCLOPHOSPHAMIDE [Concomitant]
     Dosage: UNK
     Dates: start: 20100720

REACTIONS (1)
  - CHRONIC LYMPHOCYTIC LEUKAEMIA [None]
